FAERS Safety Report 11008564 (Version 1)
Quarter: 2015Q2

REPORT INFORMATION
  Report Type: Spontaneous
  Country: US (occurrence: None)
  Receive Date: 20150408
  Receipt Date: 20150408
  Transmission Date: 20150821
  Serious: Yes (Other)
  Sender: FDA-Public Use
  Company Number: 2809356

PATIENT
  Age: 65 Year
  Sex: Female

DRUGS (1)
  1. TOPOTECAN HYDROCHLORIDE. [Suspect]
     Active Substance: TOPOTECAN HYDROCHLORIDE
     Indication: METASTASES TO MENINGES
     Dosage: INTRACEREBRAL

REACTIONS (1)
  - Cerebral cyst [None]
